FAERS Safety Report 12702718 (Version 1)
Quarter: 2016Q3

REPORT INFORMATION
  Report Type: Spontaneous
  Country: US (occurrence: US)
  Receive Date: 20160831
  Receipt Date: 20160831
  Transmission Date: 20161109
  Serious: Yes (Other)
  Sender: FDA-Public Use
  Company Number: US-PFIZER INC-2016405303

PATIENT
  Sex: Male

DRUGS (2)
  1. GABAPENTIN. [Suspect]
     Active Substance: GABAPENTIN
     Indication: NERVE COMPRESSION
     Dosage: UNK UNK, 2X/DAY(EITHER 300 OR 600 MG TWICE A DAY)
  2. GABAPENTIN. [Suspect]
     Active Substance: GABAPENTIN
     Dosage: 600 MG, DAILY(300 MG IN MORNING AND 300 MG IN NIGHT)

REACTIONS (6)
  - Nerve injury [Unknown]
  - Burning sensation [Unknown]
  - Electric shock [Not Recovered/Not Resolved]
  - Neuralgia [Unknown]
  - Drug ineffective for unapproved indication [Unknown]
  - Muscle strain [Unknown]
